FAERS Safety Report 7459829-8 (Version None)
Quarter: 2011Q2

REPORT INFORMATION
  Report Type: 
  Country: None (occurrence: None)
  Receive Date: 20110504
  Receipt Date: 20110504
  Transmission Date: 20111010
  Serious: Yes (Life-Threatening)
  Sender: FDA-Public Use
  Company Number: None

PATIENT
  Age: 43 Year
  Sex: Female
  Weight: 54 kg

DRUGS (2)
  1. TYSABRI [Suspect]
     Dosage: EVERY MONTH INTRACAVERNOUS
     Route: 017
     Dates: start: 20110412, end: 20110412
  2. TYSABRI [Suspect]
     Dosage: EVERY MONTH INTRACAVERNOUS
     Route: 017
     Dates: start: 20110312, end: 20110312

REACTIONS (1)
  - ACUTE PROMYELOCYTIC LEUKAEMIA [None]
